FAERS Safety Report 13567145 (Version 1)
Quarter: 2017Q2

REPORT INFORMATION
  Report Type: Spontaneous
  Country: US (occurrence: US)
  Receive Date: 20170522
  Receipt Date: 20170522
  Transmission Date: 20170830
  Serious: No
  Sender: FDA-Public Use
  Company Number: US-TEVA-762002USA

PATIENT
  Age: 75 Year
  Sex: Male

DRUGS (1)
  1. CLONIDINE. [Suspect]
     Active Substance: CLONIDINE
     Indication: HYPERTENSION
     Route: 065

REACTIONS (5)
  - Skin burning sensation [Recovering/Resolving]
  - Wound [Unknown]
  - Dermatitis contact [Recovering/Resolving]
  - Rash [Recovering/Resolving]
  - Pruritus [Not Recovered/Not Resolved]
